FAERS Safety Report 4380992-X (Version None)
Quarter: 2004Q2

REPORT INFORMATION
  Report Type: 
  Country: None (occurrence: None)
  Receive Date: 20040614
  Receipt Date: 20040607
  Transmission Date: 20050107
  Serious: Yes (Life-Threatening, Hospitalization, Other)
  Sender: FDA-Public Use
  Company Number: GBWYE812008JUN04

PATIENT
  Age: 41 Year
  Sex: Male

DRUGS (4)
  1. EFFEXOR [Suspect]
     Indication: DEPRESSION
     Dosage: 75 MG
     Route: 048
     Dates: start: 20040428, end: 20040507
  2. OLANZAPINE [Suspect]
     Indication: AGITATION
     Dosage: 5 MG
     Route: 048
     Dates: start: 20040302, end: 20040507
  3. PROPRANOLOL [Concomitant]
  4. CINNARIZINE (CINNARIZINE) [Concomitant]

REACTIONS (4)
  - MUSCULOSKELETAL STIFFNESS [None]
  - NUCHAL RIGIDITY [None]
  - OPISTHOTONUS [None]
  - RESPIRATORY ARREST [None]
